FAERS Safety Report 4602430-1 (Version None)
Quarter: 2005Q1

REPORT INFORMATION
  Report Type: 
  Country: None (occurrence: None)
  Receive Date: 20050307
  Receipt Date: 20050224
  Transmission Date: 20050727
  Serious: Yes (Death, Other)
  Sender: FDA-Public Use
  Company Number: USA-2005-0019070

PATIENT
  Age: 43 Year
  Sex: Male

DRUGS (3)
  1. OXYCONTIN [Suspect]
     Dosage: MG
  2. NORTRIPTYLINE HCL [Suspect]
  3. OXYMORPHONE HYDROCHLORIDE [Suspect]

REACTIONS (6)
  - ABDOMINAL PAIN [None]
  - COMA [None]
  - DRUG TOXICITY [None]
  - HAEMATEMESIS [None]
  - MALAISE [None]
  - MULTIPLE DRUG OVERDOSE ACCIDENTAL [None]
